FAERS Safety Report 7130633-3 (Version None)
Quarter: 2010Q4

REPORT INFORMATION
  Report Type: 
  Country: None (occurrence: None)
  Receive Date: 20101201
  Receipt Date: 20101122
  Transmission Date: 20110411
  Serious: Yes (Hospitalization, Other)
  Sender: FDA-Public Use
  Company Number: BR-SANOFI-AVENTIS-2010SA071223

PATIENT
  Sex: Male
  Weight: 60 kg

DRUGS (9)
  1. LANTUS [Suspect]
     Route: 058
  2. OPTIPEN [Suspect]
  3. NOVORAPID [Suspect]
     Route: 058
  4. GLUCOBAY [Concomitant]
     Route: 048
     Dates: start: 20090101
  5. APRESOLINE [Concomitant]
     Indication: ARRHYTHMIA
     Route: 048
     Dates: start: 19950101
  6. MONOCORDIL [Concomitant]
     Route: 048
  7. ASPIRIN [Concomitant]
     Route: 048
  8. CILOSTAZOL [Concomitant]
     Route: 048
  9. SIMVASTATIN [Concomitant]
     Route: 048
     Dates: start: 20040101

REACTIONS (10)
  - BLISTER [None]
  - DIZZINESS [None]
  - GAIT DISTURBANCE [None]
  - HAEMATOMA [None]
  - HERPES VIRUS INFECTION [None]
  - HYPERGLYCAEMIA [None]
  - HYPOGLYCAEMIA [None]
  - PAIN IN EXTREMITY [None]
  - PYREXIA [None]
  - SOMNOLENCE [None]
